FAERS Safety Report 24691881 (Version 1)
Quarter: 2024Q4

REPORT INFORMATION
  Report Type: Report from Study
  Country: CA (occurrence: CA)
  Receive Date: 20241203
  Receipt Date: 20241203
  Transmission Date: 20250115
  Serious: Yes (Death, Other)
  Sender: SANDOZ
  Company Number: CA-002147023-NVSC2022CA253926

PATIENT
  Age: 59 Year
  Sex: Female

DRUGS (2)
  1. HYRIMOZ [Suspect]
     Active Substance: ADALIMUMAB-ADAZ
     Dosage: 40 MG, Q2W
     Route: 058
     Dates: start: 20221028
  2. HYRIMOZ [Suspect]
     Active Substance: ADALIMUMAB-ADAZ
     Indication: Crohn^s disease
     Dosage: 40 MG, Q2W (EVERY TWO WEEKS)
     Route: 058
     Dates: start: 20220506

REACTIONS (10)
  - Death [Fatal]
  - Neoplasm malignant [Unknown]
  - Haemorrhoids [Recovering/Resolving]
  - Anal fissure [Recovering/Resolving]
  - Abnormal faeces [Recovering/Resolving]
  - General physical health deterioration [Recovering/Resolving]
  - Arthralgia [Unknown]
  - Scar [Unknown]
  - Pain in extremity [Unknown]
  - Urinary tract infection [Recovering/Resolving]

NARRATIVE: CASE EVENT DATE: 20240701
